FAERS Safety Report 15562349 (Version 1)
Quarter: 2018Q4

REPORT INFORMATION
  Report Type: Spontaneous
  Country: IL (occurrence: IL)
  Receive Date: 20181029
  Receipt Date: 20181029
  Transmission Date: 20190205
  Serious: Yes (Hospitalization, Other)
  Sender: FDA-Public Use
  Company Number: PHHY2018IL136940

PATIENT
  Sex: Female
  Weight: 60 kg

DRUGS (3)
  1. AROMASIN [Suspect]
     Active Substance: EXEMESTANE
     Indication: BREAST CANCER METASTATIC
     Dosage: 25 MG, QD
     Route: 065
     Dates: start: 20180718, end: 201808
  2. XGEVA [Concomitant]
     Active Substance: DENOSUMAB
     Indication: BREAST CANCER METASTATIC
     Route: 065
  3. AFINITOR [Suspect]
     Active Substance: EVEROLIMUS
     Indication: BREAST CANCER METASTATIC
     Dosage: 10 MG, QD
     Route: 065
     Dates: start: 20180718, end: 201808

REACTIONS (10)
  - Melaena [Unknown]
  - Dysphagia [Unknown]
  - Hypochromic anaemia [Unknown]
  - Blood creatinine increased [Unknown]
  - Renal failure [Unknown]
  - Nausea [Recovered/Resolved]
  - Weight decreased [Unknown]
  - Cerebral disorder [Unknown]
  - Haemoglobin decreased [Unknown]
  - Gastrointestinal ulcer [Unknown]
